FAERS Safety Report 11390785 (Version 1)
Quarter: 2015Q3

REPORT INFORMATION
  Report Type: Spontaneous
  Country: DE (occurrence: None)
  Receive Date: 20150807
  Receipt Date: 20150807
  Transmission Date: 20151125
  Serious: Yes (Life-Threatening)
  Sender: FDA-Public Use
  Company Number: DE-AGG-07-2015-0612

PATIENT
  Age: 58 Year
  Sex: Male
  Weight: 85 kg

DRUGS (8)
  1. TIROFIBAN HCL [Suspect]
     Active Substance: TIROFIBAN HYDROCHLORIDE
     Indication: ANTIPLATELET THERAPY
     Route: 042
     Dates: start: 20070301, end: 20070302
  2. MORPHINE [Concomitant]
     Active Substance: MORPHINE
  3. CLOPIDOGREL [Concomitant]
     Active Substance: CLOPIDOGREL BISULFATE
  4. TIROFIBAN HCL [Suspect]
     Active Substance: TIROFIBAN HYDROCHLORIDE
     Indication: ANTIPLATELET THERAPY
     Route: 042
     Dates: start: 20070301, end: 20070301
  5. ACETYLSALICYLIC ACID [Concomitant]
     Active Substance: ASPIRIN
  6. ANTICOAGULATION [Concomitant]
     Active Substance: UNSPECIFIED INGREDIENT
  7. BETA BLOCKER [Concomitant]
     Active Substance: UNSPECIFIED INGREDIENT
  8. PLACEBO [Concomitant]
     Active Substance: UNSPECIFIED INGREDIENT

REACTIONS (1)
  - Myocardial infarction [None]

NARRATIVE: CASE EVENT DATE: 20070301
